FAERS Safety Report 8835186 (Version 3)
Quarter: 2012Q4

REPORT INFORMATION
  Report Type: 
  Country: US (occurrence: US)
  Receive Date: 20121011
  Receipt Date: 20121024
  Transmission Date: 20130627
  Serious: Yes (Hospitalization, Other)
  Sender: FDA-Public Use
  Company Number: US-PFIZER INC-2012251998

PATIENT
  Age: 77 Year
  Sex: Male
  Weight: 63.2 kg

DRUGS (20)
  1. AMIODARONE HCL [Suspect]
     Indication: ATRIAL FIBRILLATION
     Dosage: 400 mg, 2x/day
     Route: 048
  2. AMIODARONE HCL [Interacting]
     Dosage: 200 mg, 1x/day
     Route: 048
  3. AMIODARONE HCL [Interacting]
     Dosage: 200 mg, 1x/day
     Route: 048
  4. AMIODARONE [Interacting]
     Dosage: UNK
     Route: 042
  5. DABIGATRAN [Interacting]
     Indication: ATRIAL FIBRILLATION
     Dosage: 150 mg, 2x/day
     Route: 048
  6. WARFARIN [Suspect]
     Indication: PROPHYLAXIS
     Dosage: 2 mg, UNK
     Route: 048
  7. ASPIRIN [Concomitant]
     Dosage: 81 mg, 1x/day
     Route: 048
  8. CITALOPRAM [Concomitant]
     Dosage: 20 mg, 1x/day
     Route: 048
  9. DIGOXIN [Concomitant]
     Dosage: 0.125 mg, 1x/day
     Route: 048
  10. FINASTERIDE [Concomitant]
     Dosage: 5 mg, 1x/day
     Route: 048
  11. FUROSEMIDE [Concomitant]
     Dosage: 40 mg, 1x/day
     Route: 048
  12. GLIPIZIDE [Concomitant]
     Dosage: 2.5 mg, 1x/day
     Route: 048
  13. LISINOPRIL [Concomitant]
     Dosage: 5 mg, 1x/day
     Route: 048
  14. MEGESTROL ACETATE [Concomitant]
     Dosage: 400 mg, 2x/day
     Route: 048
  15. METOPROLOL [Concomitant]
     Dosage: 50 mg, 2x/day
     Route: 048
  16. MULTIVITAMIN [Concomitant]
     Dosage: 1 DF, 1x/day
     Route: 048
  17. PANTOPRAZOLE [Concomitant]
     Indication: PROPHYLAXIS
     Dosage: 40 mg, 1x/day
     Route: 048
  18. SENNA [Concomitant]
     Indication: CONSTIPATION
     Dosage: 2 DF, as needed
  19. TAMSULOSIN [Concomitant]
     Dosage: 0.4 mg, 1x/day
     Route: 048
  20. INSULIN LISPRO [Concomitant]
     Route: 058

REACTIONS (4)
  - Drug interaction [Recovered/Resolved]
  - Upper gastrointestinal haemorrhage [Recovered/Resolved]
  - International normalised ratio increased [Recovered/Resolved]
  - Activated partial thromboplastin time prolonged [Recovered/Resolved]
